FAERS Safety Report 4748535-6 (Version None)
Quarter: 2005Q3

REPORT INFORMATION
  Report Type: 
  Country: None (occurrence: None)
  Receive Date: 20050819
  Receipt Date: 20050811
  Transmission Date: 20060218
  Serious: Yes (Hospitalization)
  Sender: FDA-Public Use
  Company Number: US-BOEHRINGER INGELHEIM PHARMACEUTICALS, INC.-2005-BP-13787BP

PATIENT
  Sex: Female
  Weight: 72.1 kg

DRUGS (6)
  1. BIBR 1048 (DABIGATRAN ETEXILATE) (BLIND) [Suspect]
     Indication: THROMBOSIS PROPHYLAXIS
     Route: 048
     Dates: start: 20050805
  2. ENOXAPARIN (BLIND) [Suspect]
     Indication: THROMBOSIS PROPHYLAXIS
     Route: 058
     Dates: start: 20050806
  3. PERI-COLACE [Suspect]
     Indication: CONSTIPATION PROPHYLAXIS
     Route: 048
     Dates: start: 20050806
  4. MILK OF MAGNESIA TAB [Suspect]
     Indication: CONSTIPATION
  5. DARVOCET-N 100 [Concomitant]
     Indication: PROCEDURAL PAIN
     Route: 048
     Dates: start: 20050806
  6. LASIX [Concomitant]
     Indication: DIURETIC THERAPY
     Route: 042
     Dates: start: 20050806, end: 20050806

REACTIONS (5)
  - GASTRITIS EROSIVE [None]
  - HAEMOGLOBIN DECREASED [None]
  - HIATUS HERNIA [None]
  - OCCULT BLOOD POSITIVE [None]
  - REFLUX OESOPHAGITIS [None]
